FAERS Safety Report 20325219 (Version 5)
Quarter: 2022Q1

REPORT INFORMATION
  Report Type: Report from Study
  Country: ES (occurrence: ES)
  Receive Date: 20220112
  Receipt Date: 20220131
  Transmission Date: 20220423
  Serious: Yes (Other)
  Sender: FDA-Public Use
  Company Number: ES-ABBVIE-22K-144-4226960-00

PATIENT
  Age: 74 Year
  Sex: Male

DRUGS (5)
  1. CARBIDOPA\LEVODOPA [Suspect]
     Active Substance: CARBIDOPA\LEVODOPA
     Indication: Parkinson^s disease
     Dosage: CONTINUOUS DOSE INCREASED 3.6 ML/H.?DUODOPA ABV ROW PEG 15F
     Route: 050
     Dates: start: 20211216, end: 202201
  2. CARBIDOPA\LEVODOPA [Suspect]
     Active Substance: CARBIDOPA\LEVODOPA
     Dosage: CONTINUOUS DOSE 3.8 ML/H.
     Route: 050
     Dates: start: 202201, end: 202201
  3. CARBIDOPA\LEVODOPA [Suspect]
     Active Substance: CARBIDOPA\LEVODOPA
     Dosage: DAYTIME ONE CONTINUOUS DOSE OF 3.8 ML, NOCTURNAL ONE WITH HALF OF THE DOSE
     Route: 050
     Dates: start: 202201, end: 20220117
  4. CARBIDOPA\LEVODOPA [Suspect]
     Active Substance: CARBIDOPA\LEVODOPA
     Dosage: DAYTIME PUMP 4ML AND NIGHT TIME PUMP 3 ML
     Route: 050
     Dates: start: 20220117
  5. SINEMET [Concomitant]
     Active Substance: CARBIDOPA\LEVODOPA
     Indication: Product used for unknown indication
     Dosage: AT NIGHT

REACTIONS (4)
  - Gastric cancer [Recovered/Resolved]
  - Helicobacter infection [Recovered/Resolved]
  - Insomnia [Recovering/Resolving]
  - On and off phenomenon [Recovered/Resolved]

NARRATIVE: CASE EVENT DATE: 20211201
